FAERS Safety Report 8935381 (Version 1)
Quarter: 2012Q4

REPORT INFORMATION
  Report Type: Spontaneous
  Country: US (occurrence: None)
  Receive Date: 20121127
  Receipt Date: 20121127
  Transmission Date: 20130627
  Serious: No
  Sender: FDA-Public Use
  Company Number: None

PATIENT
  Age: 43 Year
  Sex: Female
  Weight: 51.26 kg

DRUGS (1)
  1. ESCITALOPRAM [Suspect]
     Indication: DEPRESSION
     Route: 048
     Dates: start: 20121029, end: 20121029

REACTIONS (9)
  - Product substitution issue [None]
  - Product quality issue [None]
  - Anxiety [None]
  - Crying [None]
  - Dizziness [None]
  - Coordination abnormal [None]
  - Loss of proprioception [None]
  - Periorbital contusion [None]
  - Accident [None]
